FAERS Safety Report 14364821 (Version 1)
Quarter: 2018Q1

REPORT INFORMATION
  Report Type: Spontaneous
  Country: US (occurrence: US)
  Receive Date: 20180108
  Receipt Date: 20180108
  Transmission Date: 20180509
  Serious: No
  Sender: FDA-Public Use
  Company Number: None

PATIENT
  Age: 20 Year
  Sex: Female
  Weight: 90 kg

DRUGS (3)
  1. MUCINEX SINUS-MAX PRESSURE AND PAIN [Suspect]
     Active Substance: ACETAMINOPHEN\GUAIFENESIN\PHENYLEPHRINE HYDROCHLORIDE
     Indication: SINUSITIS
     Dosage: ?          QUANTITY:20 CAPSULE(S);?
     Route: 048
  2. HONEY LEMONS TEA [Concomitant]
  3. CEPACOL THROAT SUPPLEMENT [Concomitant]

REACTIONS (3)
  - Lip swelling [None]
  - Lip pain [None]
  - Hypoaesthesia oral [None]

NARRATIVE: CASE EVENT DATE: 20180108
